FAERS Safety Report 9537185 (Version 2)
Quarter: 2013Q3

REPORT INFORMATION
  Report Type: Spontaneous
  Country: US (occurrence: US)
  Receive Date: 20130919
  Receipt Date: 20130919
  Transmission Date: 20140515
  Serious: No
  Sender: FDA-Public Use
  Company Number: US-PURDUE-USA-2012-0093954

PATIENT
  Age: 81 Year
  Sex: Female

DRUGS (5)
  1. INTERMEZZO [Suspect]
     Indication: MIDDLE INSOMNIA
     Dosage: 1.75 MG, NOCTE
     Route: 060
     Dates: start: 20120701
  2. COUMADIN                           /00014802/ [Concomitant]
     Indication: SUBDURAL HAEMATOMA
     Dosage: 5 MG, DAILY
     Route: 048
  3. SYNTHROID [Concomitant]
     Dosage: 0.175 MG, DAILY
     Route: 048
  4. AMIODARONE [Concomitant]
     Indication: ATRIAL FIBRILLATION
     Dosage: 200 MG, DAILY
     Route: 048
  5. LIPITOR [Concomitant]
     Indication: BLOOD CHOLESTEROL
     Dosage: 10 MG, DAILY
     Route: 048

REACTIONS (2)
  - Hypersomnia [Recovered/Resolved]
  - Sluggishness [Recovered/Resolved]
